FAERS Safety Report 8599947 (Version 3)
Quarter: 2015Q1

REPORT INFORMATION
  Report Type: Report from Study
  Country: US (occurrence: US)
  Receive Date: 20120605
  Receipt Date: 20150313
  Transmission Date: 20150721
  Serious: Yes (Death, Hospitalization, Other)
  Sender: FDA-Public Use
  Company Number: US-ROCHE-1074432

PATIENT
  Age: 86 Year
  Sex: Female

DRUGS (1)
  1. XELODA [Suspect]
     Active Substance: CAPECITABINE
     Indication: BREAST CANCER FEMALE
     Dosage: 2 TABLETS 2 TIMES PER DAY FOR 14 DAYS THEN OFF FOR 7 DAYS.
     Route: 048
     Dates: start: 20111219, end: 20120322

REACTIONS (4)
  - Death [Fatal]
  - Skin ulcer [Unknown]
  - Intestinal resection [Recovered/Resolved]
  - Large intestinal obstruction [Unknown]

NARRATIVE: CASE EVENT DATE: 20120111
